FAERS Safety Report 11729473 (Version 1)
Quarter: 2015Q4

REPORT INFORMATION
  Report Type: Spontaneous
  Country: CN (occurrence: CN)
  Receive Date: 20151112
  Receipt Date: 20151112
  Transmission Date: 20160304
  Serious: Yes (Other)
  Sender: FDA-Public Use
  Company Number: CN-BAYER-2015-461015

PATIENT
  Age: 30 Year
  Sex: Female
  Weight: 55 kg

DRUGS (1)
  1. MOXIFLOXACIN ORAL [Suspect]
     Active Substance: MOXIFLOXACIN
     Indication: HELICOBACTER INFECTION
     Dosage: 400 MG, QD
     Route: 048

REACTIONS (5)
  - Vomiting [None]
  - Dizziness [None]
  - Headache [None]
  - Off label use [None]
  - Amaurosis [None]
